FAERS Safety Report 12475118 (Version 1)
Quarter: 2016Q2

REPORT INFORMATION
  Report Type: Spontaneous
  Country: US (occurrence: US)
  Receive Date: 20160617
  Receipt Date: 20160617
  Transmission Date: 20160815
  Serious: Yes (Hospitalization)
  Sender: FDA-Public Use
  Company Number: US-BEH-2016070279

PATIENT
  Sex: Female
  Weight: 61.22 kg

DRUGS (23)
  1. VENLAFAXINE [Concomitant]
     Active Substance: VENLAFAXINE HYDROCHLORIDE
  2. DILTIAZEM [Concomitant]
     Active Substance: DILTIAZEM
  3. PULMICORT TURBUHALER [Concomitant]
     Active Substance: BUDESONIDE
  4. LORATADINE. [Concomitant]
     Active Substance: LORATADINE
  5. DIPHENHYDRAMINE. [Concomitant]
     Active Substance: DIPHENHYDRAMINE
  6. ISOSORBIDE MONONITRATE. [Concomitant]
     Active Substance: ISOSORBIDE MONONITRATE
  7. ALBUTEROL                          /00139501/ [Concomitant]
     Active Substance: ALBUTEROL
  8. VITAMIN D                          /00107901/ [Concomitant]
     Active Substance: ERGOCALCIFEROL
  9. DAILY MULTIVITAMIN [Concomitant]
     Active Substance: VITAMINS
  10. OXYGEN. [Concomitant]
     Active Substance: OXYGEN
  11. ALENDRONATE [Concomitant]
     Active Substance: ALENDRONATE SODIUM
  12. EPINEPHRINE. [Concomitant]
     Active Substance: EPINEPHRINE
  13. ECHINACEA                          /01323501/ [Concomitant]
  14. AMITRIPTYLINE [Concomitant]
     Active Substance: AMITRIPTYLINE
  15. LIDOCAINE/PRILOCAINE [Concomitant]
     Active Substance: LIDOCAINE\PRILOCAINE
  16. HIZENTRA [Suspect]
     Active Substance: HUMAN IMMUNOGLOBULIN G
     Indication: IMMUNODEFICIENCY COMMON VARIABLE
     Dosage: 8 G, QW
     Route: 058
     Dates: start: 20101104
  17. ASPIRIN. [Concomitant]
     Active Substance: ASPIRIN
  18. POTASSIUM CHLORIDE. [Concomitant]
     Active Substance: POTASSIUM CHLORIDE
  19. TERAZOSIN [Concomitant]
     Active Substance: TERAZOSIN\TERAZOSIN HYDROCHLORIDE
  20. IPRATROPIUM [Concomitant]
     Active Substance: IPRATROPIUM
  21. COQ 10 [Concomitant]
     Active Substance: UBIDECARENONE
  22. LOSARTAN HYDROCHLOROTHIAZIDE ACTAVIS [Concomitant]
  23. GABAPENTIN. [Concomitant]
     Active Substance: GABAPENTIN

REACTIONS (1)
  - Stent placement [Unknown]
